FAERS Safety Report 25851368 (Version 1)
Quarter: 2025Q3

REPORT INFORMATION
  Report Type: Spontaneous
  Country: US (occurrence: None)
  Receive Date: 20250925
  Receipt Date: 20250925
  Transmission Date: 20251020
  Serious: No
  Sender: FDA-CTU
  Company Number: None

PATIENT
  Age: 72 Year
  Sex: Male
  Weight: 87.75 kg

DRUGS (6)
  1. KEYTRUDA [Suspect]
     Active Substance: PEMBROLIZUMAB
     Indication: Bladder cancer
     Dates: start: 20221010
  2. SYNTHROID [Concomitant]
     Active Substance: LEVOTHYROXINE SODIUM
  3. CELEBREX [Concomitant]
     Active Substance: CELECOXIB
  4. TESTOSTERONE [Concomitant]
     Active Substance: TESTOSTERONE
  5. etoprolol [Concomitant]
  6. Multiple vitain mature [Concomitant]

REACTIONS (3)
  - Polyglandular disorder [None]
  - Thyroid hormones decreased [None]
  - Blood testosterone decreased [None]

NARRATIVE: CASE EVENT DATE: 20240905
